FAERS Safety Report 10593641 (Version 1)
Quarter: 2014Q4

REPORT INFORMATION
  Report Type: Spontaneous
  Country: US (occurrence: US)
  Receive Date: 20141119
  Receipt Date: 20141119
  Transmission Date: 20150529
  Serious: No
  Sender: FDA-Public Use
  Company Number: US-BIOMARINAP-US-2014-104256

PATIENT
  Age: 11 Year
  Sex: Male

DRUGS (2)
  1. VIMIZIM [Suspect]
     Active Substance: ELOSULFASE ALFA
     Indication: PRODUCT USED FOR UNKNOWN INDICATION
     Dosage: 55 MG, UNK
     Route: 041
  2. VIMIZIM [Suspect]
     Active Substance: ELOSULFASE ALFA
     Dosage: 50 MG, UNK
     Route: 041

REACTIONS (1)
  - Headache [Unknown]
